FAERS Safety Report 23217656 (Version 1)
Quarter: 2023Q4

REPORT INFORMATION
  Report Type: Spontaneous
  Country: US (occurrence: US)
  Receive Date: 20231122
  Receipt Date: 20231122
  Transmission Date: 20240109
  Serious: Yes (Other)
  Sender: FDA-Public Use
  Company Number: US-ELI_LILLY_AND_COMPANY-US202311009344

PATIENT
  Sex: Male

DRUGS (4)
  1. HUMULIN 70/30 [Suspect]
     Active Substance: INSULIN HUMAN
     Indication: Blood glucose increased
     Dosage: UNK UNK, UNKNOWN
     Route: 065
     Dates: start: 202210
  2. LIVTENCITY [Concomitant]
     Active Substance: MARIBAVIR
     Indication: Cytomegalovirus infection
  3. FARXIGA [Concomitant]
     Active Substance: DAPAGLIFLOZIN PROPANEDIOL
     Indication: Product used for unknown indication
  4. METFORMIN [Concomitant]
     Active Substance: METFORMIN HYDROCHLORIDE
     Indication: Product used for unknown indication

REACTIONS (3)
  - Retinal detachment [Unknown]
  - Diabetic retinopathy [Unknown]
  - Glycosylated haemoglobin increased [Unknown]
